FAERS Safety Report 6115085-4 (Version None)
Quarter: 2009Q1

REPORT INFORMATION
  Report Type: 
  Country: None (occurrence: None)
  Receive Date: 20090313
  Receipt Date: 20090310
  Transmission Date: 20090719
  Serious: Yes (Other)
  Sender: FDA-Public Use
  Company Number: B0564140A

PATIENT
  Age: 31 Year
  Sex: Male

DRUGS (1)
  1. ZEFFIX [Suspect]
     Indication: HEPATITIS B

REACTIONS (2)
  - ATRIOVENTRICULAR BLOCK [None]
  - BRADYCARDIA [None]
